FAERS Safety Report 17617000 (Version 3)
Quarter: 2020Q3

REPORT INFORMATION
  Report Type: Report from Study
  Country: US (occurrence: US)
  Receive Date: 20200402
  Receipt Date: 20200709
  Transmission Date: 20201102
  Serious: Yes (Hospitalization, Other)
  Sender: FDA-Public Use
  Company Number: US-GILEAD-2020-0456998

PATIENT
  Sex: Male

DRUGS (15)
  1. FEROSUL [Concomitant]
     Active Substance: FERROUS SULFATE
  2. LOSARTAN POTASSIUM. [Concomitant]
     Active Substance: LOSARTAN POTASSIUM
  3. PULMOZYME [Concomitant]
     Active Substance: DORNASE ALFA
     Dosage: NEBULIZE 1 VIAL ONCE DAILY
     Dates: start: 20200430
  4. AZTREONAM LYSINE [Suspect]
     Active Substance: AZTREONAM LYSINE
     Indication: CYSTIC FIBROSIS
     Dosage: 75 MG, TID, QOM
     Route: 055
     Dates: start: 201202
  5. AZTREONAM LYSINE [Suspect]
     Active Substance: AZTREONAM LYSINE
     Indication: PSEUDOMONAS INFECTION
  6. PHYTONADIONE. [Concomitant]
     Active Substance: PHYTONADIONE
  7. VITAMIN D+A [Concomitant]
  8. AZITHROMYCIN ANHYDROUS. [Concomitant]
     Active Substance: AZITHROMYCIN ANHYDROUS
  9. URSODIOL. [Concomitant]
     Active Substance: URSODIOL
  10. ALBUTEROL [SALBUTAMOL SULFATE] [Concomitant]
     Active Substance: ALBUTEROL SULFATE
  11. ZOLPIDEM [Concomitant]
     Active Substance: ZOLPIDEM TARTRATE
  12. TRIKAFTA [Concomitant]
     Active Substance: ELEXACAFTOR\IVACAFTOR\TEZACAFTOR
     Dosage: TAKE 2 ORANGE TABLETS BY MOUTH EVERY MORNING AND 1 BLUE TABLET BY MOUTH EVERY EVENING
     Dates: start: 20200430
  13. VITAMIN D3 [Concomitant]
     Active Substance: CHOLECALCIFEROL
  14. FUROSEMIDE. [Concomitant]
     Active Substance: FUROSEMIDE
  15. POTASSIUM CHLORIDE. [Concomitant]
     Active Substance: POTASSIUM CHLORIDE

REACTIONS (5)
  - Ascites [Not Recovered/Not Resolved]
  - Hepatic failure [Recovered/Resolved]
  - Renal failure [Unknown]
  - Fluid retention [Recovered/Resolved]
  - Abdominal distension [Unknown]
